FAERS Safety Report 12964118 (Version 1)
Quarter: 2016Q4

REPORT INFORMATION
  Report Type: Report from Study
  Country: CA (occurrence: CA)
  Receive Date: 20161122
  Receipt Date: 20161122
  Transmission Date: 20170207
  Serious: Yes (Other)
  Sender: FDA-Public Use
  Company Number: CA-AMGEN-CANSL2016160840

PATIENT
  Age: 61 Year
  Sex: Female

DRUGS (1)
  1. PROLIA [Suspect]
     Active Substance: DENOSUMAB
     Indication: OSTEOPOROSIS
     Dosage: UNK
     Route: 065
     Dates: start: 20160612

REACTIONS (7)
  - Pyrexia [Unknown]
  - Intervertebral disc protrusion [Unknown]
  - Malaise [Unknown]
  - Pruritus [Unknown]
  - Urticaria [Unknown]
  - Rash pruritic [Unknown]
  - Swelling [Unknown]
